APPROVED DRUG PRODUCT: QUETIAPINE FUMARATE
Active Ingredient: QUETIAPINE FUMARATE
Strength: EQ 400MG BASE
Dosage Form/Route: TABLET;ORAL
Application: A202674 | Product #006 | TE Code: AB
Applicant: UNICHEM LABORATORIES LTD
Approved: Mar 8, 2016 | RLD: No | RS: No | Type: RX